FAERS Safety Report 5094994-1 (Version None)
Quarter: 2006Q3

REPORT INFORMATION
  Report Type: 
  Country: None (occurrence: None)
  Receive Date: 20060901
  Receipt Date: 20060814
  Transmission Date: 20061208
  Serious: Yes (Life-Threatening, Other)
  Sender: FDA-Public Use
  Company Number: GB-BRISTOL-MYERS SQUIBB COMPANY-13474945

PATIENT
  Age: 77 Year
  Sex: Male
  Weight: 80 kg

DRUGS (6)
  1. ABILIFY [Suspect]
     Indication: SCHIZOPHRENIA
     Route: 048
     Dates: start: 20050531, end: 20060628
  2. ASPIRIN [Concomitant]
     Route: 048
     Dates: start: 20031201, end: 20060628
  3. DIAZEPAM [Concomitant]
     Indication: AGITATION
     Dates: start: 20011206, end: 20060629
  4. LORAZEPAM [Concomitant]
     Indication: AGITATION
     Dates: start: 20020108, end: 20060628
  5. MOVICOL [Concomitant]
     Route: 048
     Dates: end: 20060629
  6. TRIMETHOPRIM [Concomitant]
     Indication: URINARY TRACT INFECTION
     Route: 048
     Dates: start: 20060629, end: 20060629

REACTIONS (4)
  - ABDOMINAL SEPSIS [None]
  - NEUROLEPTIC MALIGNANT SYNDROME [None]
  - RENAL FAILURE ACUTE [None]
  - RHABDOMYOLYSIS [None]
